FAERS Safety Report 8901173 (Version 2)
Quarter: 2012Q4

REPORT INFORMATION
  Report Type: 
  Country: US (occurrence: US)
  Receive Date: 20121109
  Receipt Date: 20121120
  Transmission Date: 20130627
  Serious: Yes (Death, Other)
  Sender: FDA-Public Use
  Company Number: US-VERTEX PHARMACEUTICAL INC.-2012-024236

PATIENT
  Age: 55 Year
  Sex: Male
  Weight: 110 kg

DRUGS (6)
  1. INCIVEK [Suspect]
     Indication: HEPATITIS C
     Dosage: 750 mg, tid
     Route: 048
     Dates: start: 20111206, end: 20120312
  2. PEGASYS [Suspect]
     Indication: HEPATITIS C
     Dosage: 180 ?g, qw
     Route: 058
     Dates: start: 20111206, end: 20121031
  3. RIBASPHERE [Suspect]
     Indication: HEPATITIS C
     Dosage: 400 mg, bid
     Route: 048
     Dates: start: 20111206, end: 20121031
  4. DIOVAN HCT [Concomitant]
     Indication: HYPERTENSION
     Dosage: 320/25 1 daily
     Route: 048
  5. CLONIDINE [Concomitant]
     Indication: HYPERTENSION
     Dosage: 0.2 mg, qd
     Route: 048
  6. ATENOLOL [Concomitant]
     Indication: HYPERTENSION
     Dosage: 25 mg, bid
     Route: 048

REACTIONS (2)
  - Death [Fatal]
  - Depression [Unknown]
